FAERS Safety Report 15417584 (Version 3)
Quarter: 2018Q4

REPORT INFORMATION
  Report Type: Spontaneous
  Country: KW (occurrence: KW)
  Receive Date: 20180924
  Receipt Date: 20181115
  Transmission Date: 20190204
  Serious: Yes (Hospitalization)
  Sender: FDA-Public Use
  Company Number: KW-AMGEN-KWTSP2018131900

PATIENT
  Age: 54 Year
  Sex: Female

DRUGS (17)
  1. FOLIC ACID. [Concomitant]
     Active Substance: FOLIC ACID
     Dosage: UNK UNK, 1X/DAY
  2. ACTRAPID [Concomitant]
     Active Substance: INSULIN HUMAN
     Indication: DIABETES MELLITUS
     Dosage: UNK UNK, 3X/DAY
     Dates: start: 20180910
  3. CELEBREX [Concomitant]
     Active Substance: CELECOXIB
     Dosage: UNK UNK, 2X/DAY
  4. DIOVAN [Concomitant]
     Active Substance: VALSARTAN
     Indication: HYPERTENSION
     Dosage: UNK UNK, 1X/DAY
     Dates: start: 20180911
  5. CALCIUM + VITAMIN D [Concomitant]
     Active Substance: CALCIUM\VITAMIN D
     Dosage: UNK UNK, 2X/DAY
  6. ASPIRIN. [Concomitant]
     Active Substance: ASPIRIN
     Indication: BLOOD DISORDER
     Dosage: UNK
     Dates: start: 20180910
  7. LANTUS [Concomitant]
     Active Substance: INSULIN GLARGINE
     Indication: DIABETES MELLITUS
     Dosage: AT NIGHT
     Dates: start: 20180917
  8. CLEXANE [Concomitant]
     Active Substance: ENOXAPARIN SODIUM
     Indication: ANTICOAGULANT THERAPY
     Dosage: UNK UNK, 1X/DAY
     Dates: start: 20180910, end: 20180915
  9. ARAVA [Concomitant]
     Active Substance: LEFLUNOMIDE
     Dosage: UNK UNK, 1X/DAY
  10. DEXPANTHENOL. [Concomitant]
     Active Substance: DEXPANTHENOL
     Dosage: UNK UNK, 2X/DAY
  11. GASEC [Concomitant]
     Active Substance: OMEPRAZOLE SODIUM
     Dosage: UNK UNK, 1X/DAY HALF AN HOUR BEFORE BREAKFAST
  12. GLUCOPHAGE [Concomitant]
     Active Substance: METFORMIN HYDROCHLORIDE
     Indication: DIABETES MELLITUS
     Dosage: UNK UNK, 2X/DAY
     Dates: end: 20180910
  13. NORVASC [Concomitant]
     Active Substance: AMLODIPINE BESYLATE
     Indication: HYPERTENSION
     Dosage: UNK UNK, 1X/DAY
     Dates: end: 20180911
  14. ATACAND [Concomitant]
     Active Substance: CANDESARTAN CILEXETIL
     Indication: HYPERTENSION
     Dosage: UNK UNK, 1X/DAY
     Dates: end: 20180911
  15. LIPITOR [Concomitant]
     Active Substance: ATORVASTATIN CALCIUM
     Indication: HYPERLIPIDAEMIA
     Dosage: UNK UNK, 1X/DAY
  16. ENBREL [Suspect]
     Active Substance: ETANERCEPT
     Indication: RHEUMATOID ARTHRITIS
     Dosage: 50 MG, EVERY TWO WEEKS
     Route: 058
     Dates: start: 20140405
  17. VASELINE PURE [Concomitant]
     Active Substance: PETROLATUM
     Dosage: UNK UNK, 3X/DAY

REACTIONS (2)
  - Hemiplegia [Recovered/Resolved]
  - Accelerated hypertension [Recovering/Resolving]

NARRATIVE: CASE EVENT DATE: 20180910
